FAERS Safety Report 5933320-X (Version None)
Quarter: 2008Q4

REPORT INFORMATION
  Report Type: 
  Country: None (occurrence: None)
  Receive Date: 20081028
  Receipt Date: 20081016
  Transmission Date: 20090506
  Serious: Yes (Other)
  Sender: FDA-Public Use
  Company Number: US-PFIZER INC-2008088064

PATIENT
  Sex: Female
  Weight: 86.363 kg

DRUGS (3)
  1. CHANTIX [Suspect]
     Indication: SMOKING CESSATION THERAPY
     Dates: start: 20070101, end: 20070101
  2. NICOTROL [Suspect]
     Indication: SMOKING CESSATION THERAPY
     Route: 055
     Dates: start: 20080927
  3. ADVIL [Concomitant]

REACTIONS (6)
  - ABDOMINAL DISTENSION [None]
  - FEELING ABNORMAL [None]
  - HUNGER [None]
  - ILL-DEFINED DISORDER [None]
  - KNEE OPERATION [None]
  - TONGUE DISORDER [None]
